FAERS Safety Report 16678573 (Version 1)
Quarter: 2019Q3

REPORT INFORMATION
  Report Type: Spontaneous
  Country: IT (occurrence: IT)
  Receive Date: 20190807
  Receipt Date: 20190807
  Transmission Date: 20191004
  Serious: Yes (Hospitalization)
  Sender: FDA-Public Use
  Company Number: IT-BRISTOL-MYERS SQUIBB COMPANY-BMS-2019-073931

PATIENT
  Age: 3 Year
  Sex: Male
  Weight: 20 kg

DRUGS (1)
  1. COUMADIN [Suspect]
     Active Substance: WARFARIN SODIUM
     Indication: ACCIDENTAL EXPOSURE TO PRODUCT
     Dosage: UNK
     Route: 048
     Dates: start: 20190610, end: 20190610

REACTIONS (4)
  - Accidental exposure to product by child [Recovering/Resolving]
  - Headache [Recovering/Resolving]
  - Somnolence [Recovering/Resolving]
  - Vomiting [Recovering/Resolving]

NARRATIVE: CASE EVENT DATE: 20190610
